FAERS Safety Report 4830672-9 (Version None)
Quarter: 2005Q4

REPORT INFORMATION
  Report Type: 
  Country: None (occurrence: None)
  Receive Date: 20051115
  Receipt Date: 20051102
  Transmission Date: 20060501
  Serious: Yes (Other)
  Sender: FDA-Public Use
  Company Number: 2005151529

PATIENT
  Age: 69 Year
  Sex: Female

DRUGS (6)
  1. EPIRUBICIN [Suspect]
     Indication: BREAST CANCER
  2. CYCLOPHOSPHAMIDE [Suspect]
     Indication: BREAST CANCER
     Dates: start: 20020601, end: 20040401
  3. DOXIFLURIDINE (DOXIFLURIDINE) [Concomitant]
  4. DOCETAXEL (DOCETAXEL) [Concomitant]
  5. PACLITAXEL [Concomitant]
  6. IRINOTECAN HCL [Concomitant]

REACTIONS (5)
  - ACUTE MYELOID LEUKAEMIA [None]
  - BREAST CANCER [None]
  - MALIGNANT NEOPLASM PROGRESSION [None]
  - RENAL DISORDER [None]
  - THERAPY NON-RESPONDER [None]
